FAERS Safety Report 8386210-X (Version None)
Quarter: 2012Q2

REPORT INFORMATION
  Report Type: 
  Country: None (occurrence: None)
  Receive Date: 20120525
  Receipt Date: 20120518
  Transmission Date: 20120825
  Serious: Yes (Other)
  Sender: FDA-Public Use
  Company Number: FR-PFIZER INC-2012122043

PATIENT
  Age: 46 Year
  Sex: Female

DRUGS (2)
  1. LYRICA [Suspect]
     Indication: BACK PAIN
     Dosage: 50 MG, 2X/DAY
     Dates: start: 20120315
  2. OXYCODONE [Concomitant]
     Dosage: UNK

REACTIONS (4)
  - IMMOBILE [None]
  - DYSSTASIA [None]
  - MUSCULAR WEAKNESS [None]
  - GAIT DISTURBANCE [None]
